FAERS Safety Report 5472982-0 (Version None)
Quarter: 2007Q4

REPORT INFORMATION
  Report Type: 
  Country: None (occurrence: None)
  Receive Date: 20071001
  Receipt Date: 20070226
  Transmission Date: 20080405
  Serious: No
  Sender: FDA-Public Use
  Company Number: US-ASTRAZENECA-2007UW02239

PATIENT
  Age: 75 Year
  Sex: Female
  Weight: 59 kg

DRUGS (5)
  1. ARIMIDEX [Suspect]
     Indication: BREAST CANCER
     Route: 048
     Dates: start: 20070101
  2. EFFEXOR [Concomitant]
     Indication: ANXIETY
  3. GENERAL VITAMIN [Concomitant]
  4. GLUCOSAMINE [Concomitant]
  5. LORAZEPAM [Concomitant]

REACTIONS (8)
  - ASTHENIA [None]
  - BACK PAIN [None]
  - DEPRESSION [None]
  - DISTURBANCE IN ATTENTION [None]
  - FEELING JITTERY [None]
  - HOT FLUSH [None]
  - LETHARGY [None]
  - TREMOR [None]
